FAERS Safety Report 4641123-1 (Version None)
Quarter: 2005Q2

REPORT INFORMATION
  Report Type: 
  Country: None (occurrence: None)
  Receive Date: 20050419
  Receipt Date: 20050419
  Transmission Date: 20051028
  Serious: Yes (Other)
  Sender: FDA-Public Use
  Company Number: None

PATIENT
  Sex: Male
  Weight: 94.75 kg

DRUGS (4)
  1. ETOPOSIDE [Suspect]
     Dosage: 50 MG /M2/DAY P.O. DAILY DAYS 1-14
     Route: 048
     Dates: start: 20050317
  2. PACLITAXEL [Suspect]
     Dosage: 135 MG/M2 IV OVER 60 MINUTES DAY 2
     Route: 042
     Dates: start: 20050317
  3. HORMONE THERAPY [Suspect]
     Dates: start: 20050317
  4. ESTRAMUSTINE [Suspect]
     Dosage: 280 MG PO DAILY DAYS 1-14
     Route: 048
     Dates: start: 20050317

REACTIONS (1)
  - ACUTE CORONARY SYNDROME [None]
